FAERS Safety Report 11518715 (Version 1)
Quarter: 2015Q3

REPORT INFORMATION
  Report Type: Spontaneous
  Country: US (occurrence: US)
  Receive Date: 20150917
  Receipt Date: 20150917
  Transmission Date: 20151125
  Serious: No
  Sender: FDA-Public Use
  Company Number: US-MERZ NORTH AMERICA, INC.-15MRZ-00502

PATIENT
  Sex: Female

DRUGS (4)
  1. LIDOCAINE. [Suspect]
     Active Substance: LIDOCAINE
     Indication: ANAESTHETIC PREMEDICATION
     Route: 061
     Dates: start: 20150914, end: 20150914
  2. XEOMIN [Suspect]
     Active Substance: INCOBOTULINUMTOXINA
     Indication: SKIN WRINKLING
     Route: 030
     Dates: start: 20150914, end: 20150914
  3. TETRACAINE [Suspect]
     Active Substance: TETRACAINE\TETRACAINE HYDROCHLORIDE
     Indication: ANAESTHETIC PREMEDICATION
     Route: 061
     Dates: start: 20150914, end: 20150914
  4. BENZOCAINE. [Suspect]
     Active Substance: BENZOCAINE
     Indication: ANAESTHETIC PREMEDICATION
     Route: 061
     Dates: start: 20150914, end: 20150914

REACTIONS (3)
  - Erythema [Recovering/Resolving]
  - Pyrexia [Recovering/Resolving]
  - Feeling hot [Recovering/Resolving]

NARRATIVE: CASE EVENT DATE: 201509
